FAERS Safety Report 6123747-8 (Version None)
Quarter: 2009Q1

REPORT INFORMATION
  Report Type: 
  Country: None (occurrence: None)
  Receive Date: 20090317
  Receipt Date: 20090304
  Transmission Date: 20090719
  Serious: Yes (Hospitalization)
  Sender: FDA-Public Use
  Company Number: 2009-192645-NL

PATIENT
  Age: 72 Year
  Sex: Female

DRUGS (12)
  1. MIRTAZAPINE [Suspect]
     Indication: DEPRESSION
     Dosage: 15 MG ORAL
     Route: 048
     Dates: start: 20080210, end: 20080419
  2. VENLAFAXINE HYDROCHLORIDE [Suspect]
     Indication: DEPRESSION
     Dosage: 75 MG/150 MG ORAL
     Route: 048
     Dates: start: 20080308, end: 20080310
  3. VENLAFAXINE HYDROCHLORIDE [Suspect]
     Indication: DEPRESSION
     Dosage: 75 MG/150 MG ORAL
     Route: 048
     Dates: start: 20080311, end: 20080417
  4. ESOMEPRAZOLE MAGNESIUM [Suspect]
     Dosage: 20 MG ORAL
     Route: 048
     Dates: end: 20080417
  5. RAMIPRIL [Suspect]
     Indication: HYPERTENSION
     Dosage: 10 MG ORAL
     Route: 048
  6. VALSARTAN [Concomitant]
  7. ATORVASTATIN CALCIUM [Concomitant]
  8. NEBIVOLOL HCL [Concomitant]
  9. COTRIM [Concomitant]
  10. ACETYLSALICYLIC ACID [Concomitant]
  11. ZOPICLONE [Concomitant]
  12. LORAZEPAM [Concomitant]

REACTIONS (5)
  - AGITATION [None]
  - DRUG LEVEL INCREASED [None]
  - HYPONATRAEMIA [None]
  - METABOLIC DISORDER [None]
  - NIGHTMARE [None]
